FAERS Safety Report 11196182 (Version 1)
Quarter: 2015Q2

REPORT INFORMATION
  Report Type: Spontaneous
  Country: FR (occurrence: FR)
  Receive Date: 20150617
  Receipt Date: 20150617
  Transmission Date: 20150821
  Serious: Yes (Hospitalization)
  Sender: FDA-Public Use
  Company Number: FR-TEVA-570260ISR

PATIENT
  Age: 39 Year
  Sex: Female

DRUGS (6)
  1. XEROQUEL [Suspect]
     Active Substance: QUETIAPINE FUMARATE
     Indication: DEPRESSION
     Dosage: 400 MILLIGRAM DAILY;
     Route: 048
     Dates: start: 20141031, end: 20141202
  2. TERCIAN [Suspect]
     Active Substance: CYAMEMAZINE
     Indication: DEPRESSION
     Route: 048
     Dates: end: 20141202
  3. CITALOPRAM [Suspect]
     Active Substance: CITALOPRAM HYDROBROMIDE
     Indication: DEPRESSION
     Route: 048
     Dates: end: 20141202
  4. PANTOPRAZOLE ISOMED [Suspect]
     Active Substance: PANTOPRAZOLE SODIUM
  5. MIRTAZAPINE. [Suspect]
     Active Substance: MIRTAZAPINE
     Indication: DEPRESSION
     Dosage: 30 MILLIGRAM DAILY;
     Route: 048
     Dates: end: 20141202
  6. PREVISCAN [Suspect]
     Active Substance: FLUINDIONE
     Indication: DEEP VEIN THROMBOSIS
     Route: 048
     Dates: end: 20141202

REACTIONS (1)
  - Pulmonary embolism [Recovered/Resolved]

NARRATIVE: CASE EVENT DATE: 20141128
